FAERS Safety Report 6017206-0 (Version None)
Quarter: 2008Q4

REPORT INFORMATION
  Report Type: 
  Country: None (occurrence: None)
  Receive Date: 20081223
  Receipt Date: 20081219
  Transmission Date: 20090506
  Serious: Yes (Other)
  Sender: FDA-Public Use
  Company Number: GB-BRISTOL-MYERS SQUIBB COMPANY-14452585

PATIENT
  Age: 72 Year
  Sex: Female

DRUGS (3)
  1. METFORMIN HCL [Suspect]
  2. GLIPIZIDE [Suspect]
  3. ROSIGLITAZONE MALEATE [Suspect]

REACTIONS (2)
  - DIABETES MELLITUS INADEQUATE CONTROL [None]
  - WEIGHT FLUCTUATION [None]
